FAERS Safety Report 10868483 (Version 1)
Quarter: 2015Q1

REPORT INFORMATION
  Report Type: Spontaneous
  Country: FR (occurrence: FR)
  Receive Date: 20150225
  Receipt Date: 20150225
  Transmission Date: 20150721
  Serious: Yes (Hospitalization)
  Sender: FDA-Public Use
  Company Number: FR-PFIZER INC-2015064129

PATIENT
  Age: 35 Year
  Sex: Female

DRUGS (7)
  1. DUPHALAC [Concomitant]
     Active Substance: LACTULOSE
     Dosage: UNK
  2. TAZOCILLINE [Suspect]
     Active Substance: PIPERACILLIN SODIUM\TAZOBACTAM SODIUM
     Dosage: UNK
     Dates: start: 20141209, end: 20141221
  3. SPECIAFOLDINE [Concomitant]
     Active Substance: FOLIC ACID
     Dosage: UNK
  4. ROCEPHINE [Concomitant]
     Active Substance: CEFTRIAXONE SODIUM
     Indication: PYELONEPHRITIS
     Dosage: UNK
     Dates: start: 20141208, end: 20141209
  5. CORTANCYL [Suspect]
     Active Substance: PREDNISONE
     Dosage: UNK
     Dates: start: 20141218, end: 20141221
  6. FLAGYL [Concomitant]
     Active Substance: METRONIDAZOLE\METRONIDAZOLE HYDROCHLORIDE
     Indication: PYELONEPHRITIS
     Dosage: UNK
     Dates: start: 20141208, end: 20141209
  7. ULCAR [Concomitant]
     Active Substance: SUCRALFATE
     Dosage: UNK

REACTIONS (2)
  - Disorientation [Recovered/Resolved]
  - Hallucination [Recovered/Resolved]

NARRATIVE: CASE EVENT DATE: 20141221
